FAERS Safety Report 11878982 (Version 4)
Quarter: 2016Q2

REPORT INFORMATION
  Report Type: Spontaneous
  Country: DE (occurrence: DE)
  Receive Date: 20151230
  Receipt Date: 20160520
  Transmission Date: 20160815
  Serious: Yes (Death, Hospitalization, Other)
  Sender: FDA-Public Use
  Company Number: PHHY2015DE170482

PATIENT
  Age: 81 Year
  Sex: Male
  Weight: 67 kg

DRUGS (10)
  1. XARELTO [Concomitant]
     Active Substance: RIVAROXABAN
     Indication: ATRIAL FIBRILLATION
     Dosage: 15 MG, BID (1X1)
     Route: 065
  2. VOLTAREN PLUS [Concomitant]
     Indication: PAIN
     Dosage: 3 DF, QD (UPTO 3 X1)
     Route: 065
     Dates: start: 20150623
  3. DOCETAXEL. [Suspect]
     Active Substance: DOCETAXEL
     Indication: METASTASES TO BONE
     Dosage: UNK
     Route: 065
  4. PREDNISOLON [Concomitant]
     Active Substance: PREDNISOLONE
     Indication: PRODUCT USED FOR UNKNOWN INDICATION
     Dosage: 5 MG, BID (1X1)
     Route: 065
  5. DIGITOXIN [Concomitant]
     Active Substance: DIGITOXIN
     Indication: ATRIAL FIBRILLATION
     Dosage: 1 DF, BID (1X1)
     Route: 065
  6. METAMIZOLE [Concomitant]
     Active Substance: METAMIZOLE
     Indication: PAIN
     Dosage: UPTO 5X30 DRP
     Route: 065
     Dates: start: 20150623
  7. ZYTIGA [Suspect]
     Active Substance: ABIRATERONE ACETATE
     Indication: HORMONE-REFRACTORY PROSTATE CANCER
  8. DOCETAXEL. [Suspect]
     Active Substance: DOCETAXEL
     Indication: MALIGNANT NEOPLASM PROGRESSION
  9. ZOMETA [Suspect]
     Active Substance: ZOLEDRONIC ACID
     Indication: METASTASES TO BONE
     Dosage: UNK
     Route: 065
     Dates: start: 201502
  10. ZYTIGA [Suspect]
     Active Substance: ABIRATERONE ACETATE
     Indication: PROSTATE CANCER METASTATIC
     Dosage: 250 MG, (0-0-4)
     Route: 048
     Dates: start: 201504, end: 201507

REACTIONS (36)
  - Dyspnoea at rest [Unknown]
  - Thrombocytopenia [Unknown]
  - Blood glucose increased [Unknown]
  - Blood creatinine decreased [Unknown]
  - Protein total decreased [Unknown]
  - Fat tissue decreased [Unknown]
  - Fluid retention [Unknown]
  - Diarrhoea [Unknown]
  - Dysgeusia [Unknown]
  - Respiratory failure [Fatal]
  - Pneumonitis [Fatal]
  - Blood albumin decreased [Unknown]
  - Nausea [Unknown]
  - Chest pain [Unknown]
  - Drug intolerance [Unknown]
  - Decreased appetite [Unknown]
  - Pneumonia [Fatal]
  - Acute coronary syndrome [Unknown]
  - Delirium [Unknown]
  - Malignant neoplasm progression [Unknown]
  - Blood osmolarity decreased [Unknown]
  - Dizziness [Unknown]
  - Hypoxia [Unknown]
  - Restlessness [Unknown]
  - Blood alkaline phosphatase increased [Unknown]
  - Pleural effusion [Unknown]
  - Sepsis [Fatal]
  - Anaemia [Unknown]
  - Metastases to bone [Unknown]
  - General physical health deterioration [Unknown]
  - Aspartate aminotransferase increased [Unknown]
  - Gamma-glutamyltransferase increased [Unknown]
  - Dry mouth [Unknown]
  - Blood sodium decreased [Unknown]
  - Weight decreased [Unknown]
  - Constipation [Unknown]

NARRATIVE: CASE EVENT DATE: 201503
